FAERS Safety Report 6553613-5 (Version None)
Quarter: 2010Q1

REPORT INFORMATION
  Report Type: 
  Country: None (occurrence: None)
  Receive Date: 20100122
  Receipt Date: 20100118
  Transmission Date: 20100710
  Serious: Yes (Other)
  Sender: FDA-Public Use
  Company Number: 10-000104

PATIENT
  Age: 19 Year
  Sex: Male

DRUGS (1)
  1. DORYX [Suspect]
     Indication: ACNE
     Dosage: ORAL
     Route: 048
     Dates: start: 20100105, end: 20100101

REACTIONS (5)
  - ANAEMIA HAEMOLYTIC AUTOIMMUNE [None]
  - DYSPNOEA [None]
  - EYE HAEMORRHAGE [None]
  - FATIGUE [None]
  - WARM TYPE HAEMOLYTIC ANAEMIA [None]
